FAERS Safety Report 14103366 (Version 2)
Quarter: 2019Q4

REPORT INFORMATION
  Report Type: Spontaneous
  Country: GB (occurrence: GB)
  Receive Date: 20171018
  Receipt Date: 20191104
  Transmission Date: 20200122
  Serious: Yes (Other)
  Sender: FDA-Public Use
  Company Number: GB-MYLANLABS-2017M1063965

PATIENT
  Age: 66 Year
  Sex: Female
  Weight: 70 kg

DRUGS (5)
  1. PARACETAMOL [Concomitant]
     Active Substance: ACETAMINOPHEN
     Dosage: UNK, OCCASIONALLY
  2. IBUPROFEN. [Concomitant]
     Active Substance: IBUPROFEN
     Dosage: UNK, OCCASIONALLY
  3. BISOPROLOL [Suspect]
     Active Substance: BISOPROLOL
     Dosage: UNK
     Dates: start: 20170729, end: 20170731
  4. LEVOTHYROXINE. [Concomitant]
     Active Substance: LEVOTHYROXINE
  5. BISOPROLOL [Suspect]
     Active Substance: BISOPROLOL
     Indication: ANXIETY
     Dosage: 2.5 MG, QD
     Dates: start: 20170622, end: 20170728

REACTIONS (12)
  - Anxiety [Recovered/Resolved with Sequelae]
  - Irritability [Recovered/Resolved]
  - Dizziness [Recovered/Resolved]
  - Asthenia [Recovered/Resolved]
  - Decreased interest [Recovered/Resolved]
  - Headache [Recovered/Resolved]
  - Feeling abnormal [Recovered/Resolved]
  - Condition aggravated [Recovered/Resolved]
  - Depression [Recovered/Resolved]
  - Personality change [Recovered/Resolved]
  - Hypersomnia [Recovered/Resolved]
  - Decreased appetite [Recovered/Resolved]

NARRATIVE: CASE EVENT DATE: 20170623
